FAERS Safety Report 9976147 (Version 1)
Quarter: 2014Q1

REPORT INFORMATION
  Report Type: Report from Study
  Country: US (occurrence: US)
  Receive Date: 20140306
  Receipt Date: 20140306
  Transmission Date: 20141002
  Serious: No
  Sender: FDA-Public Use
  Company Number: US-ABBVIE-13P-163-1167226-00

PATIENT
  Age: 35 Year
  Sex: Male

DRUGS (6)
  1. HUMIRA [Suspect]
     Indication: COLITIS ULCERATIVE
     Dates: start: 20131023
  2. HUMIRA [Suspect]
     Dates: start: 20131106
  3. PREDNISONE [Concomitant]
     Indication: COLITIS ULCERATIVE
  4. PREDNISONE [Concomitant]
     Dosage: TAPERS BY 5MG EVERY WEEK
  5. METHOTREXATE INJECTION [Concomitant]
     Indication: COLITIS ULCERATIVE
  6. NORCO [Concomitant]
     Indication: COLITIS ULCERATIVE

REACTIONS (1)
  - Injection site pain [Recovering/Resolving]
